FAERS Safety Report 7050234-5 (Version None)
Quarter: 2010Q4

REPORT INFORMATION
  Report Type: 
  Country: None (occurrence: None)
  Receive Date: 20101018
  Receipt Date: 20101009
  Transmission Date: 20110411
  Serious: Yes (Other)
  Sender: FDA-Public Use
  Company Number: US-US-EMD SERONO, INC.-7014516

PATIENT
  Sex: Female

DRUGS (2)
  1. REBIF [Suspect]
     Indication: MULTIPLE SCLEROSIS
     Route: 058
     Dates: start: 20080214, end: 20100816
  2. REBIF [Suspect]
     Dates: start: 20100101

REACTIONS (2)
  - INFLUENZA LIKE ILLNESS [None]
  - VENOUS INSUFFICIENCY [None]
